FAERS Safety Report 5251389-5 (Version None)
Quarter: 2007Q1

REPORT INFORMATION
  Report Type: 
  Country: None (occurrence: None)
  Receive Date: 20070228
  Receipt Date: 20060519
  Transmission Date: 20070707
  Serious: No
  Sender: FDA-Public Use
  Company Number: US-GLAXOSMITHKLINE-A0604234A

PATIENT
  Age: 16 Year
  Sex: Male
  Weight: 48.2 kg

DRUGS (3)
  1. LAMICTAL [Suspect]
     Route: 048
     Dates: start: 20060401
  2. RISPERDAL [Concomitant]
  3. BENZTROPINE MESYLATE [Concomitant]

REACTIONS (3)
  - DROOLING [None]
  - THIRST [None]
  - TONGUE COATED [None]
